FAERS Safety Report 16805447 (Version 1)
Quarter: 2019Q3

REPORT INFORMATION
  Report Type: Report from Study
  Country: US (occurrence: US)
  Receive Date: 20190913
  Receipt Date: 20190913
  Transmission Date: 20191005
  Serious: Yes (Hospitalization)
  Sender: FDA-Public Use
  Company Number: PHEH2019US037331

PATIENT

DRUGS (2)
  1. COSENTYX [Suspect]
     Active Substance: SECUKINUMAB
     Dosage: UNK
     Route: 058
     Dates: start: 20190810
  2. COSENTYX [Suspect]
     Active Substance: SECUKINUMAB
     Indication: PSORIASIS
     Dosage: 300 MG (Q WEEKLY X 5 WEEKS THEN 300MG Q4 WEEKS), QW
     Route: 058
     Dates: start: 201902

REACTIONS (5)
  - Malnutrition [Unknown]
  - Human anaplasmosis [Unknown]
  - Arthropod bite [Unknown]
  - Dysphagia [Unknown]
  - Pharyngeal swelling [Unknown]
